FAERS Safety Report 5637237-X (Version None)
Quarter: 2008Q1

REPORT INFORMATION
  Report Type: 
  Country: None (occurrence: None)
  Receive Date: 20080220
  Receipt Date: 20080220
  Transmission Date: 20080703
  Serious: Yes (Death, Hospitalization)
  Sender: FDA-Public Use
  Company Number: None

PATIENT
  Age: 52 Year
  Sex: Female
  Weight: 66.6788 kg

DRUGS (4)
  1. AVASTIN [Suspect]
     Indication: BREAST CANCER METASTATIC
     Dosage: 10MG/KG  DAY 1 + 15 Q4W  IV
     Route: 042
     Dates: start: 20071113, end: 20080115
  2. AVASTIN [Suspect]
     Indication: METASTASES TO BONE
     Dosage: 10MG/KG  DAY 1 + 15 Q4W  IV
     Route: 042
     Dates: start: 20071113, end: 20080115
  3. ABRAXANE [Suspect]
     Indication: BREAST CANCER METASTATIC
     Dosage: 100MG/M2   DAY 1, 8 15 Q4W  IV
     Route: 042
     Dates: start: 20071113, end: 20080122
  4. ABRAXANE [Suspect]
     Indication: METASTASES TO BONE
     Dosage: 100MG/M2   DAY 1, 8 15 Q4W  IV
     Route: 042
     Dates: start: 20071113, end: 20080122

REACTIONS (9)
  - ANOXIC ENCEPHALOPATHY [None]
  - APNOEA [None]
  - CARDIAC ARREST [None]
  - FACIAL PALSY [None]
  - HYPOTENSION [None]
  - ISCHAEMIC CEREBRAL INFARCTION [None]
  - MUSCULAR WEAKNESS [None]
  - SPEECH DISORDER [None]
  - VISUAL ACUITY REDUCED [None]
